FAERS Safety Report 6504359-0 (Version None)
Quarter: 2009Q4

REPORT INFORMATION
  Report Type: 
  Country: None (occurrence: None)
  Receive Date: 20091217
  Receipt Date: 20091209
  Transmission Date: 20100525
  Serious: Yes (Hospitalization, Other)
  Sender: FDA-Public Use
  Company Number: BR-ABBOTT-09P-020-0613517-00

PATIENT
  Sex: Female

DRUGS (7)
  1. HUMIRA [Suspect]
     Indication: RHEUMATOID ARTHRITIS
     Route: 058
  2. CELECOXIB [Concomitant]
     Indication: RHEUMATOID ARTHRITIS
     Route: 048
  3. METHOTREXATE [Concomitant]
     Indication: RHEUMATOID ARTHRITIS
     Route: 048
  4. FOLIC ACID [Concomitant]
     Indication: RHEUMATOID ARTHRITIS
     Route: 048
  5. CALCIUM PHOSPHATE/VITAMIN D (BIONUTRI) [Concomitant]
     Indication: MINERAL SUPPLEMENTATION
     Route: 048
  6. TYLENOL (CAPLET) [Concomitant]
     Indication: PAIN
     Route: 048
  7. LOSARTAN/ HYDROCHLOROTHIAZIDE (LOSAR HCT) [Concomitant]
     Indication: HYPERTENSION
     Dosage: (50MG/12.5MG)
     Route: 048

REACTIONS (4)
  - APPLICATION SITE PAIN [None]
  - APPLICATION SITE PRURITUS [None]
  - BONE DISORDER [None]
  - PAIN IN EXTREMITY [None]
